FAERS Safety Report 16884035 (Version 5)
Quarter: 2020Q1

REPORT INFORMATION
  Report Type: Report from Study
  Country: None (occurrence: US)
  Receive Date: 20191004
  Receipt Date: 20200329
  Transmission Date: 20200409
  Serious: Yes (Hospitalization)
  Sender: FDA-Public Use
  Company Number: US-ABBVIE-19K-163-2945628-00

PATIENT
  Age: 77 Year
  Sex: Female
  Weight: 59.02 kg

DRUGS (3)
  1. AZACITIDINE. [Concomitant]
     Active Substance: AZACITIDINE
     Indication: PRODUCT USED FOR UNKNOWN INDICATION
  2. VENCLEXTA [Suspect]
     Active Substance: VENETOCLAX
     Indication: ACUTE MYELOID LEUKAEMIA
     Dosage: TAKE 4 TABLET(S) BY MOUTH DAILY DAYS 1-21 OF A 28 DAY PRIOR TO AZACITIDINE,
     Route: 048
     Dates: start: 201907
  3. VIDAZA [Suspect]
     Active Substance: AZACITIDINE
     Indication: ACUTE MYELOID LEUKAEMIA
     Route: 042
     Dates: start: 201907

REACTIONS (7)
  - Fatigue [Unknown]
  - Asthenia [Unknown]
  - General physical health deterioration [Unknown]
  - Rash [Unknown]
  - Malaise [Unknown]
  - White blood cell count decreased [Not Recovered/Not Resolved]
  - Memory impairment [Unknown]

NARRATIVE: CASE EVENT DATE: 201907
